FAERS Safety Report 6146850-5 (Version None)
Quarter: 2009Q2

REPORT INFORMATION
  Report Type: 
  Country: None (occurrence: None)
  Receive Date: 20090406
  Receipt Date: 20090406
  Transmission Date: 20091009
  Serious: No
  Sender: FDA-Public Use
  Company Number: None

PATIENT
  Sex: Male

DRUGS (1)
  1. ZICAM [Suspect]
     Dates: start: 20050817, end: 20050817

REACTIONS (4)
  - AGEUSIA [None]
  - ANOSMIA [None]
  - FALL [None]
  - NASAL DISCOMFORT [None]
